FAERS Safety Report 11832283 (Version 1)
Quarter: 2015Q4

REPORT INFORMATION
  Report Type: Spontaneous
  Country: JP (occurrence: JP)
  Receive Date: 20151214
  Receipt Date: 20151214
  Transmission Date: 20160305
  Serious: Yes (Other)
  Sender: FDA-Public Use
  Company Number: JP-ASTRAZENECA-2015SF26443

PATIENT
  Sex: Female

DRUGS (1)
  1. MEROPENEM. [Suspect]
     Active Substance: MEROPENEM
     Indication: CHOLANGITIS
     Route: 042

REACTIONS (6)
  - Vitamin K deficiency [Unknown]
  - Activated partial thromboplastin time prolonged [Recovered/Resolved]
  - Coagulopathy [Unknown]
  - Post procedural haemorrhage [Unknown]
  - Prothrombin level decreased [Recovered/Resolved]
  - Gingival bleeding [Unknown]
